FAERS Safety Report 6933155-5 (Version None)
Quarter: 2010Q3

REPORT INFORMATION
  Report Type: 
  Country: None (occurrence: None)
  Receive Date: 20100820
  Receipt Date: 20100811
  Transmission Date: 20110219
  Serious: Yes (Hospitalization)
  Sender: FDA-Public Use
  Company Number: CA-BIOGENIDEC-2010BI026745

PATIENT
  Age: 51 Year
  Sex: Female
  Weight: 60 kg

DRUGS (6)
  1. TYSABRI [Suspect]
     Indication: MULTIPLE SCLEROSIS
     Route: 042
     Dates: start: 20080801, end: 20100623
  2. VITAMIN D [Concomitant]
     Indication: MULTIPLE SCLEROSIS
     Route: 048
     Dates: start: 20091214
  3. MODAFINIL [Concomitant]
     Indication: SOMNOLENCE
     Route: 048
     Dates: start: 20090630
  4. KETOROLAC [Concomitant]
     Indication: MUSCULOSKELETAL PAIN
     Route: 048
     Dates: start: 20090630
  5. TRIMEBUTINE [Concomitant]
     Indication: IRRITABLE BOWEL SYNDROME
     Route: 048
     Dates: start: 20080710
  6. TAMSULOSIN HCL [Concomitant]
     Indication: DRUG THERAPY
     Route: 048
     Dates: start: 20090729

REACTIONS (1)
  - ANAEMIA [None]
